FAERS Safety Report 9118381 (Version 1)
Quarter: 2013Q1

REPORT INFORMATION
  Report Type: Spontaneous
  Country: IT (occurrence: None)
  Receive Date: 20130128
  Receipt Date: 20130128
  Transmission Date: 20140127
  Serious: Yes (Other)
  Sender: FDA-Public Use
  Company Number: FK201300100

PATIENT
  Age: 76 Year
  Sex: Female

DRUGS (3)
  1. KETOROLAC TROMETHAMINE [Suspect]
     Indication: OSTEOARTHRITIS
     Dosage: UNKNOWN, UNKNOWN, INTRAMUSCULAR?UNKNOWN  -  UNKNOWN
     Route: 030
  2. CEFOTAXIME (CEFOTAXIME) [Concomitant]
  3. NIMESULIDE BETADEX (NIMESULIDE) [Concomitant]

REACTIONS (1)
  - Embolia cutis medicamentosa [None]
